FAERS Safety Report 6710686-4 (Version None)
Quarter: 2010Q2

REPORT INFORMATION
  Report Type: 
  Country: None (occurrence: None)
  Receive Date: 20100504
  Receipt Date: 20100504
  Transmission Date: 20101027
  Serious: Yes (Other)
  Sender: FDA-Public Use
  Company Number: None

PATIENT
  Age: 1 Year
  Sex: Male
  Weight: 12.2471 kg

DRUGS (3)
  1. CONCENTRATED TYLENOL INFANT DROPS [Suspect]
     Indication: PAIN
     Dosage: 1.6 ML 4-6 HOURS PO
     Route: 048
     Dates: start: 20100413, end: 20100420
  2. CONCENTRATED TYLENOL INFANT DROPS [Suspect]
     Indication: PYREXIA
     Dosage: 1.6 ML 4-6 HOURS PO
     Route: 048
     Dates: start: 20100413, end: 20100420
  3. CHILDREN'S BENADRYL ALLERGY [Suspect]
     Indication: RASH
     Dosage: 1 TSP 3 TIMES DAILY PO
     Route: 048
     Dates: start: 20100420, end: 20100422

REACTIONS (1)
  - RASH [None]
